FAERS Safety Report 21572400 (Version 2)
Quarter: 2022Q4

REPORT INFORMATION
  Report Type: Spontaneous
  Country: US (occurrence: US)
  Receive Date: 20221109
  Receipt Date: 20221110
  Transmission Date: 20230113
  Serious: No
  Sender: FDA-Public Use
  Company Number: US-PFIZER INC-202201283227

PATIENT
  Age: 89 Year
  Sex: Male
  Weight: 68.027 kg

DRUGS (2)
  1. PAXLOVID [Interacting]
     Active Substance: NIRMATRELVIR\RITONAVIR
     Indication: COVID-19 treatment
     Dosage: UNK
     Dates: start: 202209
  2. ALFUZOSIN [Interacting]
     Active Substance: ALFUZOSIN
     Indication: Prostate ablation
     Dosage: 10 MG, 1X/DAY
     Route: 048

REACTIONS (7)
  - Contraindicated product administered [Unknown]
  - Drug interaction [Unknown]
  - Dizziness [Not Recovered/Not Resolved]
  - Disturbance in attention [Not Recovered/Not Resolved]
  - Feeling abnormal [Unknown]
  - Condition aggravated [Unknown]
  - Diarrhoea [Not Recovered/Not Resolved]

NARRATIVE: CASE EVENT DATE: 20220901
